FAERS Safety Report 16339817 (Version 2)
Quarter: 2019Q4

REPORT INFORMATION
  Report Type: Report from Study
  Country: US (occurrence: US)
  Receive Date: 20190521
  Receipt Date: 20191223
  Transmission Date: 20200122
  Serious: Yes (Other)
  Sender: FDA-Public Use
  Company Number: US-ACTELION-A-NJ2019-190705

PATIENT
  Sex: Female
  Weight: 58.96 kg

DRUGS (3)
  1. TYVASO [Concomitant]
     Active Substance: TREPROSTINIL
  2. OPSUMIT [Suspect]
     Active Substance: MACITENTAN
     Indication: PULMONARY ARTERIAL HYPERTENSION
     Dosage: 10 MG, QD
     Route: 048
  3. ADCIRCA [Concomitant]
     Active Substance: TADALAFIL

REACTIONS (7)
  - Unevaluable event [Unknown]
  - Asthenia [Unknown]
  - Back pain [Unknown]
  - Deafness unilateral [Unknown]
  - Skin atrophy [Unknown]
  - Flushing [Unknown]
  - Productive cough [Unknown]
